FAERS Safety Report 10008611 (Version 1)
Quarter: 2014Q1

REPORT INFORMATION
  Report Type: Spontaneous
  Country: US (occurrence: US)
  Receive Date: 20140312
  Receipt Date: 20140312
  Transmission Date: 20141002
  Serious: No
  Sender: FDA-Public Use
  Company Number: US-INCYTE CORPORATION-2012IN000173

PATIENT
  Age: 58 Year
  Sex: Female

DRUGS (10)
  1. JAKAFI [Suspect]
     Indication: MYELOFIBROSIS
     Dosage: 20 MG, BID
     Route: 048
     Dates: start: 201112
  2. ALLOPURINOL [Concomitant]
  3. PLAVIX [Concomitant]
  4. LEVOXYL [Concomitant]
  5. ATENOLOL [Concomitant]
  6. LIPITOR [Concomitant]
  7. ASA [Concomitant]
     Dosage: 81 MG, UNK
  8. BENADRYL [Concomitant]
  9. WARFARIN [Concomitant]
  10. PEPCID [Concomitant]

REACTIONS (3)
  - Gait disturbance [None]
  - Viral infection [None]
  - Dizziness [None]
